FAERS Safety Report 4845373-0 (Version None)
Quarter: 2005Q4

REPORT INFORMATION
  Report Type: 
  Country: None (occurrence: None)
  Receive Date: 20051125
  Receipt Date: 20051110
  Transmission Date: 20060501
  Serious: Yes (Hospitalization)
  Sender: FDA-Public Use
  Company Number: S05-SWI-05313-01

PATIENT
  Sex: Female

DRUGS (1)
  1. CIPRALEX (ESCITALOPRAM) [Suspect]

REACTIONS (2)
  - MYOCARDIAL INFARCTION [None]
  - PARALYSIS [None]
